FAERS Safety Report 4877725-7 (Version None)
Quarter: 2005Q4

REPORT INFORMATION
  Report Type: 
  Country: None (occurrence: None)
  Receive Date: 20051206
  Receipt Date: 20050921
  Transmission Date: 20060501
  Serious: No
  Sender: FDA-Public Use
  Company Number: USA0509108771

PATIENT
  Age: 62 Year
  Sex: Male

DRUGS (4)
  1. CYMBALTA [Suspect]
     Indication: DEPRESSION
     Dosage: 60 MG
  2. WELLBUTRIN [Concomitant]
  3. ZOLOFT [Concomitant]
  4. BUSPAR [Concomitant]

REACTIONS (1)
  - SEXUAL DYSFUNCTION [None]
